FAERS Safety Report 12329263 (Version 1)
Quarter: 2016Q2

REPORT INFORMATION
  Report Type: Spontaneous
  Country: CH (occurrence: CH)
  Receive Date: 20160503
  Receipt Date: 20160503
  Transmission Date: 20160815
  Serious: Yes (Hospitalization)
  Sender: FDA-Public Use
  Company Number: CH-TEVA-654808ISR

PATIENT
  Age: 72 Year
  Sex: Male
  Weight: 61 kg

DRUGS (18)
  1. VALTREX [Suspect]
     Active Substance: VALACYCLOVIR HYDROCHLORIDE
     Dosage: 1000 MILLIGRAM DAILY; STRENGTH 500 MG
     Route: 065
     Dates: start: 20160313, end: 20160411
  2. AUGMENTIN [Suspect]
     Active Substance: AMOXICILLIN\CLAVULANATE POTASSIUM
     Dosage: 3 DOSAGE FORMS DAILY; 1 DF = 2 G AMOXICILLIN AND 200 MG CLAVULANIC ACID, INFUSION AMPULES
     Route: 041
     Dates: start: 20160227, end: 20160301
  3. TRIATEC [Concomitant]
     Active Substance: RAMIPRIL
     Dosage: 2.5 MILLIGRAM DAILY; STRENGTH 2.5 MG
     Route: 065
     Dates: start: 20160325, end: 20160328
  4. LASIX [Suspect]
     Active Substance: FUROSEMIDE
     Dosage: 40 MILLIGRAM DAILY; STRENGTH 10 MG/ML, VIALS
     Route: 042
     Dates: start: 20160227, end: 20160228
  5. FRAGMIN [Concomitant]
     Active Substance: DALTEPARIN SODIUM
     Dosage: 5000 IU (INTERNATIONAL UNIT) DAILY;
     Route: 065
     Dates: start: 201603
  6. TOREM [Concomitant]
     Active Substance: TORSEMIDE
     Dosage: 30 MILLIGRAM DAILY; STRENGTH 10 MG
     Route: 065
     Dates: start: 20160226
  7. ZYLORIC [Suspect]
     Active Substance: ALLOPURINOL
     Dosage: 300 MILLIGRAM DAILY; PAUSED FROM 27-MAR-2016
     Route: 048
     Dates: start: 20160320, end: 20160327
  8. TRIATEC [Concomitant]
     Active Substance: RAMIPRIL
     Dosage: 2.5 MILLIGRAM DAILY; STRENGTH 2.5 MG
     Route: 065
     Dates: start: 201603, end: 20160316
  9. NOPIL FORTE 800/160 TABLETTEN [Suspect]
     Active Substance: SULFAMETHOXAZOLE\TRIMETHOPRIM
     Route: 048
     Dates: start: 20160316, end: 20160327
  10. VELCADE [Suspect]
     Active Substance: BORTEZOMIB
     Dosage: .4333 MG/M2 DAILY; STRENGTH 3.5 MG, CHEMOTHERAPY
     Route: 058
     Dates: start: 20160317, end: 20160331
  11. ALDACTONE [Suspect]
     Active Substance: SPIRONOLACTONE
     Dosage: 50 MILLIGRAM DAILY; STRENGTH 50 MG
     Route: 065
     Dates: start: 20160226, end: 20160328
  12. KCL-RETARD HAUSMANN [Concomitant]
     Dosage: 20 MILLIMOL DAILY; STRENGTH 10 MMOL
     Route: 065
     Dates: start: 201603, end: 20160312
  13. DEXAMETHASON [Concomitant]
     Active Substance: DEXAMETHASONE
     Dosage: 40 MG PER DAY ADMINISTERED ON 26-MAR-2016, 28-MAR-2016 AND 29-MAR-2016
     Route: 065
     Dates: start: 20160326, end: 20160329
  14. DIFLUCAN [Concomitant]
     Active Substance: FLUCONAZOLE
     Dosage: 200 MILLIGRAM DAILY; STRENGTH 200 MG
     Route: 065
     Dates: start: 20160327, end: 20160327
  15. BENERVA [Concomitant]
     Active Substance: THIAMINE
     Dosage: 100 MILLIGRAM DAILY; STRENGTH 100 MG
     Route: 065
     Dates: start: 20160321, end: 20160401
  16. THALIDOMIDE [Suspect]
     Active Substance: THALIDOMIDE
     Dosage: 100 MILLIGRAM DAILY;
     Route: 048
     Dates: start: 20160318, end: 20160331
  17. TOREM [Concomitant]
     Active Substance: TORSEMIDE
     Dosage: 5 MILLIGRAM DAILY;
     Route: 065
     Dates: end: 20160328
  18. DEXAMETHASON [Concomitant]
     Active Substance: DEXAMETHASONE
     Dosage: 20 MG PER DAY ADMINISTERED ON 18-MAR-2016, 19-MAR-2016, 21-MAR-2016 AND 22-MAR-2016
     Route: 065
     Dates: start: 20160318, end: 20160322

REACTIONS (1)
  - Drug reaction with eosinophilia and systemic symptoms [Recovered/Resolved]

NARRATIVE: CASE EVENT DATE: 20160326
